FAERS Safety Report 14951118 (Version 1)
Quarter: 2018Q2

REPORT INFORMATION
  Report Type: Report from Study
  Country: CA (occurrence: CA)
  Receive Date: 20180530
  Receipt Date: 20180530
  Transmission Date: 20180711
  Serious: Yes (Other)
  Sender: FDA-Public Use
  Company Number: CA-BEH-2018091111

PATIENT
  Age: 78 Year
  Sex: Female

DRUGS (1)
  1. HIZENTRA [Suspect]
     Active Substance: HUMAN IMMUNOGLOBULIN G
     Indication: PRIMARY IMMUNODEFICIENCY SYNDROME
     Dosage: 14 G, QW
     Route: 058

REACTIONS (3)
  - Oesophageal spasm [Unknown]
  - Chest pain [Unknown]
  - Cataract [Unknown]

NARRATIVE: CASE EVENT DATE: 201805
